FAERS Safety Report 4410014-3 (Version None)
Quarter: 2004Q3

REPORT INFORMATION
  Report Type: 
  Country: None (occurrence: None)
  Receive Date: 20040723
  Receipt Date: 20040716
  Transmission Date: 20050211
  Serious: Yes (Other)
  Sender: FDA-Public Use
  Company Number: HQWYE255904JUN04

PATIENT
  Sex: Female
  Weight: 104.2 kg

DRUGS (4)
  1. CORDARONE [Suspect]
     Indication: VENTRICULAR EXTRASYSTOLES
     Dosage: 200 MG 2X PER 1 DAY
     Route: 048
     Dates: start: 20040301
  2. POTASSIUM CHLORIDE [Concomitant]
  3. LASIX [Concomitant]
  4. DIOVAN [Concomitant]

REACTIONS (1)
  - BREAST CANCER FEMALE [None]
